FAERS Safety Report 15592011 (Version 2)
Quarter: 2019Q2

REPORT INFORMATION
  Report Type: Other
  Country: CA (occurrence: CA)
  Receive Date: 20181107
  Receipt Date: 20190510
  Transmission Date: 20190711
  Serious: Yes (Other)
  Sender: FDA-Public Use
  Company Number: CA-DUCHESNAY INC.-2058536

PATIENT
  Sex: Female
  Weight: 2.89 kg

DRUGS (8)
  1. MTERYTI [Suspect]
     Active Substance: FOLIC ACID\MINERALS\VITAMINS
     Indication: PREGNANCY
     Route: 064
  2. BUPRENORPHINE AND NALOXONE [Suspect]
     Active Substance: BUPRENORPHINE HYDROCHLORIDE\NALOXONE HYDROCHLORIDE
     Route: 064
     Dates: start: 2016
  3. NICOTINE. [Suspect]
     Active Substance: NICOTINE
     Route: 064
  4. SUBUTEX [Suspect]
     Active Substance: BUPRENORPHINE HYDROCHLORIDE
     Route: 064
     Dates: start: 2017, end: 2017
  5. CANNABIS [Suspect]
     Active Substance: CANNABIS SATIVA SUBSP. INDICA TOP
     Route: 064
  6. OPIOID(S) [Suspect]
     Active Substance: UNSPECIFIED INGREDIENT
     Route: 064
  7. SUBOXONE [Suspect]
     Active Substance: BUPRENORPHINE HYDROCHLORIDE\NALOXONE HYDROCHLORIDE
     Route: 064
  8. COCAINE HYDROCHLORIDE. [Suspect]
     Active Substance: COCAINE HYDROCHLORIDE
     Route: 064

REACTIONS (3)
  - Respiratory disorder neonatal [Unknown]
  - Foetal exposure during pregnancy [Recovered/Resolved]
  - Drug withdrawal syndrome neonatal [Unknown]

NARRATIVE: CASE EVENT DATE: 2016
